FAERS Safety Report 8114220-6 (Version None)
Quarter: 2012Q1

REPORT INFORMATION
  Report Type: 
  Country: None (occurrence: None)
  Receive Date: 20120205
  Receipt Date: 20120201
  Transmission Date: 20120608
  Serious: Yes (Death, Hospitalization, Other)
  Sender: FDA-Public Use
  Company Number: GB-BRISTOL-MYERS SQUIBB COMPANY-16152209

PATIENT
  Age: 57 Year
  Sex: Male
  Weight: 90 kg

DRUGS (1)
  1. YERVOY [Suspect]
     Dosage: SECOND DOSE ON 06-OCT-2011
     Route: 042
     Dates: start: 20110901

REACTIONS (5)
  - WEIGHT DECREASED [None]
  - DECREASED APPETITE [None]
  - NEOPLASM MALIGNANT [None]
  - INTESTINAL PERFORATION [None]
  - INFECTIOUS PERITONITIS [None]
